FAERS Safety Report 5381860-7 (Version None)
Quarter: 2007Q3

REPORT INFORMATION
  Report Type: 
  Country: None (occurrence: None)
  Receive Date: 20070709
  Receipt Date: 20070626
  Transmission Date: 20080115
  Serious: Yes (Life-Threatening, Hospitalization)
  Sender: FDA-Public Use
  Company Number: PL-ROCHE-497954

PATIENT
  Age: 58 Year
  Sex: Female
  Weight: 67 kg

DRUGS (2)
  1. GANCICLOVIR SODIUM [Suspect]
     Indication: GLIOMA
     Route: 042
     Dates: start: 20070408, end: 20070419
  2. CEREPRO [Suspect]
     Indication: GLIOMA
     Route: 018
     Dates: start: 20070403, end: 20070403

REACTIONS (1)
  - PULMONARY EMBOLISM [None]
